FAERS Safety Report 5750599-8 (Version None)
Quarter: 2008Q2

REPORT INFORMATION
  Report Type: 
  Country: None (occurrence: None)
  Receive Date: 20080523
  Receipt Date: 20080523
  Transmission Date: 20081010
  Serious: Yes (Hospitalization)
  Sender: FDA-Public Use
  Company Number: None

PATIENT
  Sex: Male
  Weight: 70.9 kg

DRUGS (2)
  1. FLUTAMIDE [Suspect]
     Dosage: 25500 MG
  2. LEUPROLIDE ACETATE [Suspect]
     Dosage: 22.5 MG

REACTIONS (7)
  - ANOREXIA [None]
  - ASTHENIA [None]
  - BLOOD COUNT ABNORMAL [None]
  - BLOOD CREATININE INCREASED [None]
  - DIARRHOEA [None]
  - DRUG TOXICITY [None]
  - WEIGHT DECREASED [None]
